FAERS Safety Report 20539126 (Version 3)
Quarter: 2022Q2

REPORT INFORMATION
  Report Type: Report from Study
  Country: DE (occurrence: DE)
  Receive Date: 20220302
  Receipt Date: 20220425
  Transmission Date: 20220721
  Serious: Yes (Hospitalization)
  Sender: FDA-Public Use
  Company Number: DE-002147023-NVSC2022DE030275

PATIENT
  Sex: Female
  Weight: 70 kg

DRUGS (42)
  1. METHOTREXATE SODIUM [Suspect]
     Active Substance: METHOTREXATE SODIUM
     Indication: Psoriatic arthropathy
     Dosage: 15 MG, QW
     Route: 058
     Dates: start: 201504
  2. COSENTYX [Suspect]
     Active Substance: SECUKINUMAB
     Indication: Psoriatic arthropathy
     Dosage: 300 MG, ONCE (VIA PREFILLED SYRINGE)
     Route: 058
     Dates: start: 20191122, end: 20191122
  3. COSENTYX [Suspect]
     Active Substance: SECUKINUMAB
     Dosage: 300 MG, ONCE (VIA PREFILLED SYRINGE)
     Route: 058
     Dates: start: 20191129, end: 20191129
  4. COSENTYX [Suspect]
     Active Substance: SECUKINUMAB
     Dosage: 300 MG, ONCE (VIA PREFILLED SYRINGE)
     Route: 058
     Dates: start: 20191206, end: 20191206
  5. COSENTYX [Suspect]
     Active Substance: SECUKINUMAB
     Dosage: 300 MG, ONCE (VIA PREFILLED SYRINGE)
     Route: 058
     Dates: start: 20191213, end: 20191213
  6. COSENTYX [Suspect]
     Active Substance: SECUKINUMAB
     Dosage: 300 MG, ONCE (VIA PREFILLED SYRINGE)
     Route: 058
     Dates: start: 20191220, end: 20191220
  7. COSENTYX [Suspect]
     Active Substance: SECUKINUMAB
     Dosage: 300 MG, ONCE (VIA PREFILLED SYRINGE)
     Route: 058
     Dates: start: 20200117, end: 20200117
  8. COSENTYX [Suspect]
     Active Substance: SECUKINUMAB
     Dosage: 300 MG, ONCE (VIA PREFILLED SYRINGE)
     Route: 058
     Dates: start: 20200214, end: 20200214
  9. COSENTYX [Suspect]
     Active Substance: SECUKINUMAB
     Dosage: 300 MG, ONCE (VIA PREFILLED SYRINGE)
     Route: 058
     Dates: start: 20200313, end: 20200313
  10. COSENTYX [Suspect]
     Active Substance: SECUKINUMAB
     Dosage: 300 MG, ONCE (VIA PREFILLED SYRINGE)
     Route: 058
     Dates: start: 20200410, end: 20200410
  11. COSENTYX [Suspect]
     Active Substance: SECUKINUMAB
     Dosage: 300 MG, ONCE (VIA PREFILLED SYRINGE)
     Route: 058
     Dates: start: 20200508, end: 20200508
  12. COSENTYX [Suspect]
     Active Substance: SECUKINUMAB
     Dosage: 300 MG, ONCE (VIA PREFILLED SYRINGE)
     Route: 058
     Dates: start: 20200605, end: 20200605
  13. COSENTYX [Suspect]
     Active Substance: SECUKINUMAB
     Dosage: 300 MG, ONCE (VIA PREFILLED SYRINGE)
     Route: 058
     Dates: start: 20200703, end: 20200703
  14. COSENTYX [Suspect]
     Active Substance: SECUKINUMAB
     Dosage: 300 MG, ONCE (VIA PREFILLED SYRINGE)
     Route: 058
     Dates: start: 20200731, end: 20200731
  15. COSENTYX [Suspect]
     Active Substance: SECUKINUMAB
     Dosage: 300 MG, ONCE (VIA PREFILLED SYRINGE)
     Route: 058
     Dates: start: 20200828, end: 20200828
  16. COSENTYX [Suspect]
     Active Substance: SECUKINUMAB
     Dosage: 300 MG, ONCE (VIA PREFILLED SYRINGE)
     Route: 058
     Dates: start: 20200925, end: 20200925
  17. COSENTYX [Suspect]
     Active Substance: SECUKINUMAB
     Dosage: 300 MG, ONCE (VIA PREFILLED SYRINGE)
     Route: 058
     Dates: start: 20201023, end: 20201023
  18. COSENTYX [Suspect]
     Active Substance: SECUKINUMAB
     Dosage: 300 MG, ONCE (VIA PREFILLED SYRINGE)
     Route: 058
     Dates: start: 20201120, end: 20201120
  19. COSENTYX [Suspect]
     Active Substance: SECUKINUMAB
     Dosage: 300 MG, ONCE (VIA PREFILLED SYRINGE)
     Route: 058
     Dates: start: 20201218, end: 20201218
  20. COSENTYX [Suspect]
     Active Substance: SECUKINUMAB
     Dosage: 300 MG, ONCE (VIA PREFILLED SYRINGE)
     Route: 058
     Dates: start: 20210115, end: 20210115
  21. COSENTYX [Suspect]
     Active Substance: SECUKINUMAB
     Dosage: 300 MG, ONCE (VIA PREFILLED PEN)
     Route: 058
     Dates: start: 20210212, end: 20210212
  22. COSENTYX [Suspect]
     Active Substance: SECUKINUMAB
     Dosage: 300 MG, ONCE (VIA PREFILLED PEN)
     Route: 058
     Dates: start: 20210312, end: 20210312
  23. COSENTYX [Suspect]
     Active Substance: SECUKINUMAB
     Dosage: 300 MG, ONCE (VIA PREFILLED PEN)
     Route: 058
     Dates: start: 20210409, end: 20210409
  24. COSENTYX [Suspect]
     Active Substance: SECUKINUMAB
     Dosage: 300 MG, ONCE (VIA PREFILLED PEN)
     Route: 058
     Dates: start: 20210507, end: 20210507
  25. COSENTYX [Suspect]
     Active Substance: SECUKINUMAB
     Dosage: 300 MG, ONCE (VIA PREFILLED PEN)
     Route: 058
     Dates: start: 20210604, end: 20210604
  26. COSENTYX [Suspect]
     Active Substance: SECUKINUMAB
     Dosage: 300 MG, ONCE (VIA PREFILLED PEN)
     Route: 058
     Dates: start: 20210702, end: 20210702
  27. COSENTYX [Suspect]
     Active Substance: SECUKINUMAB
     Dosage: 300 MG, ONCE (VIA PREFILLED PEN)
     Route: 058
     Dates: start: 20210730, end: 20210730
  28. COSENTYX [Suspect]
     Active Substance: SECUKINUMAB
     Dosage: 300 MG, ONCE (VIA PREFILLED PEN)
     Route: 058
     Dates: start: 20210827, end: 20210827
  29. COSENTYX [Suspect]
     Active Substance: SECUKINUMAB
     Dosage: 300 MG, ONCE (VIA PREFILLED PEN)
     Route: 058
     Dates: start: 20210924, end: 20210924
  30. COSENTYX [Suspect]
     Active Substance: SECUKINUMAB
     Dosage: 300 MG, ONCE (VIA PREFILLED PEN)
     Route: 058
     Dates: start: 20211022, end: 20211022
  31. COSENTYX [Suspect]
     Active Substance: SECUKINUMAB
     Dosage: 300 MG, ONCE (VIA PREFILLED PEN)
     Route: 058
     Dates: start: 20211119, end: 20211119
  32. COSENTYX [Suspect]
     Active Substance: SECUKINUMAB
     Dosage: 300 MG, ONCE (VIA PREFILLED PEN)
     Route: 058
     Dates: start: 20211217, end: 20211217
  33. COSENTYX [Suspect]
     Active Substance: SECUKINUMAB
     Dosage: 300 MG, ONCE (VIA PREFILLED PEN)
     Route: 058
     Dates: start: 20220114, end: 20220114
  34. DULOXETINE [Concomitant]
     Active Substance: DULOXETINE
     Indication: Fibromyalgia
     Dosage: 60 MG, QD
     Route: 048
     Dates: start: 20210727
  35. DULOXETINE [Concomitant]
     Active Substance: DULOXETINE
     Dosage: 30 MG, QD
     Route: 048
     Dates: start: 2018, end: 20210726
  36. SIMVASTATIN [Concomitant]
     Active Substance: SIMVASTATIN
     Indication: Hypercholesterolaemia
     Dosage: 20/30 MG (AMBIGUOUSLY REPORTED), QD
     Route: 065
     Dates: start: 2018
  37. AMITRIPTYLINE [Concomitant]
     Active Substance: AMITRIPTYLINE
     Indication: Fibromyalgia
     Dosage: 25 MG, QD
     Route: 048
     Dates: start: 2018
  38. CHOLECALCIFEROL [Concomitant]
     Active Substance: CHOLECALCIFEROL
     Indication: Osteoporosis
     Dosage: 20000 IU, QW
     Route: 048
     Dates: start: 20220120
  39. FOLIC ACID [Concomitant]
     Active Substance: FOLIC ACID
     Indication: Drug toxicity prophylaxis
     Dosage: 5 MG, QW
     Route: 048
     Dates: start: 201410
  40. BECLOMETHASONE [Concomitant]
     Active Substance: BECLOMETHASONE
     Indication: Hypersensitivity
     Dosage: 500 UG, BID
     Route: 055
  41. RAMIPRIL [Concomitant]
     Active Substance: RAMIPRIL
     Indication: Hypertension
     Dosage: 0.5 DOSAGE FORM, QD
     Route: 048
  42. PANTOPRAZOLE [Concomitant]
     Active Substance: PANTOPRAZOLE
     Indication: Gastritis prophylaxis
     Dosage: 20 MG, QD
     Route: 048
     Dates: start: 2015

REACTIONS (3)
  - Arthralgia [Recovering/Resolving]
  - Pain [Unknown]
  - Joint effusion [Unknown]

NARRATIVE: CASE EVENT DATE: 20210725
